FAERS Safety Report 25144548 (Version 1)
Quarter: 2025Q2

REPORT INFORMATION
  Report Type: Spontaneous
  Country: JP (occurrence: JP)
  Receive Date: 20250401
  Receipt Date: 20250401
  Transmission Date: 20250717
  Serious: Yes (Death)
  Sender: MERCK SHARP AND DOHME
  Company Number: JP-MSD-M2025-03617

PATIENT
  Age: 73 Year
  Sex: Male

DRUGS (7)
  1. KEYTRUDA [Suspect]
     Active Substance: PEMBROLIZUMAB
     Indication: Renal cell carcinoma stage III
     Dosage: DOSE DESCRIPTION : 200 MILLIGRAM, Q3W?DAILY DOSE : 9.4 MILLIGRAM?REGIMEN DOSE : 200  MILLIGRAM
     Route: 041
     Dates: start: 20240822, end: 20241122
  2. BROTIZOLAM [Concomitant]
     Active Substance: BROTIZOLAM
  3. ALLOPURINOL [Concomitant]
     Active Substance: ALLOPURINOL
  4. METGLUCO [Concomitant]
     Active Substance: METFORMIN HYDROCHLORIDE
  5. VALSARTAN [Concomitant]
     Active Substance: VALSARTAN
  6. ROSUVASTATIN [Concomitant]
     Active Substance: ROSUVASTATIN
  7. LOXOPROFEN [Concomitant]
     Active Substance: LOXOPROFEN

REACTIONS (2)
  - Cardiac failure [Fatal]
  - Diabetic ketoacidosis [Fatal]

NARRATIVE: CASE EVENT DATE: 20250101
